FAERS Safety Report 6316618-5 (Version None)
Quarter: 2009Q3

REPORT INFORMATION
  Report Type: 
  Country: None (occurrence: None)
  Receive Date: 20090820
  Receipt Date: 20090814
  Transmission Date: 20100115
  Serious: Yes (Other)
  Sender: FDA-Public Use
  Company Number: US-ASTRAZENECA-2009SE08162

PATIENT
  Age: 340 Month
  Sex: Female
  Weight: 37.6 kg

DRUGS (5)
  1. NEXIUM [Suspect]
     Indication: GASTROOESOPHAGEAL REFLUX DISEASE
     Route: 048
     Dates: start: 20070101, end: 20090701
  2. SYNTHROID [Concomitant]
  3. UNSPECIFIED MEDICATION [Concomitant]
     Indication: HEADACHE
  4. UNSPECIFIED MEDICATION [Concomitant]
     Indication: NAUSEA
  5. UNSPECIFIED MEDICATION [Concomitant]
     Indication: THYROID DISORDER

REACTIONS (1)
  - HAEMATEMESIS [None]
